FAERS Safety Report 4485193-2 (Version None)
Quarter: 2004Q4

REPORT INFORMATION
  Report Type: 
  Country: None (occurrence: None)
  Receive Date: 20041026
  Receipt Date: 20040331
  Transmission Date: 20050328
  Serious: No
  Sender: FDA-Public Use
  Company Number: US-BRISTOL-MYERS SQUIBB COMPANY-12547725

PATIENT
  Age: 65 Year
  Sex: Male
  Weight: 105 kg

DRUGS (5)
  1. GLUCOPHAGE XR [Suspect]
     Indication: DIABETES MELLITUS NON-INSULIN-DEPENDENT
     Dosage: PATIENT WAS TAKING 500MG 1X DAY FOR ONE MONTH, THEN INCREASED TO 500 MG 2X DAY ON 30-MAR-2004
     Route: 048
  2. DIOVAN [Concomitant]
  3. MULTI-VITAMIN [Concomitant]
     Dosage: DURATION OF THERAPY:  ^A FEW YEARS^
  4. ASPIRIN [Concomitant]
     Dosage: DOSE:  1/2 GRAIN DAILY;  DURATION OF THERAPY:  ^A FEW YEARS^
  5. SAW PALMETTO [Concomitant]
     Dosage: DURATION OF THERAPY:  ^A FEW YEARS^

REACTIONS (3)
  - BLOOD GLUCOSE INCREASED [None]
  - MICTURITION URGENCY [None]
  - POLLAKIURIA [None]
